FAERS Safety Report 23145110 (Version 1)
Quarter: 2023Q4

REPORT INFORMATION
  Report Type: Spontaneous
  Country: FR (occurrence: FR)
  Receive Date: 20231103
  Receipt Date: 20231103
  Transmission Date: 20240110
  Serious: Yes (Death, Life-Threatening, Other)
  Sender: FDA-Public Use
  Company Number: None

PATIENT
  Age: 52 Year
  Sex: Male
  Weight: 96 kg

DRUGS (2)
  1. SOLU-MEDROL [Suspect]
     Active Substance: METHYLPREDNISOLONE SODIUM SUCCINATE
     Indication: Superior vena cava syndrome
     Dosage: UNK
     Route: 042
     Dates: start: 20230614, end: 20230802
  2. PREDNISOLONE [Suspect]
     Active Substance: PREDNISOLONE
     Indication: Superior vena cava syndrome
     Dosage: UNK
     Route: 048
     Dates: start: 20230712, end: 20231001

REACTIONS (4)
  - Meningitis bacterial [Fatal]
  - Septic shock [Recovered/Resolved]
  - Clostridium difficile infection [Recovered/Resolved]
  - Off label use [Unknown]

NARRATIVE: CASE EVENT DATE: 20230614
